FAERS Safety Report 21500404 (Version 2)
Quarter: 2022Q4

REPORT INFORMATION
  Report Type: Report from Study
  Country: US (occurrence: US)
  Receive Date: 20221025
  Receipt Date: 20221027
  Transmission Date: 20230112
  Serious: Yes (Hospitalization, Other)
  Sender: FDA-Public Use
  Company Number: US-ABBVIE-4167922

PATIENT
  Age: 67 Year
  Sex: Male

DRUGS (3)
  1. IMBRUVICA [Suspect]
     Active Substance: IBRUTINIB
     Indication: Diffuse large B-cell lymphoma
     Dosage: LAST ADMIN DATE: 2022
     Route: 048
     Dates: start: 202209
  2. IMBRUVICA [Suspect]
     Active Substance: IBRUTINIB
     Indication: Diffuse large B-cell lymphoma
     Route: 048
     Dates: start: 20221004
  3. IMBRUVICA [Suspect]
     Active Substance: IBRUTINIB
     Indication: Diffuse large B-cell lymphoma
     Dosage: LAST ADMIN DATE: 2022
     Route: 048
     Dates: start: 202209

REACTIONS (5)
  - Central nervous system lymphoma [Unknown]
  - Alopecia [Unknown]
  - Rash [Unknown]
  - Arthralgia [Unknown]
  - Radiotherapy to brain [Unknown]

NARRATIVE: CASE EVENT DATE: 20221004
